FAERS Safety Report 21602600 (Version 1)
Quarter: 2022Q4

REPORT INFORMATION
  Report Type: Spontaneous
  Country: US (occurrence: None)
  Receive Date: 20221115
  Receipt Date: 20221115
  Transmission Date: 20230113
  Serious: Yes (Other)
  Sender: FDA-Public Use
  Company Number: None

PATIENT
  Age: 64 Year
  Sex: 0

DRUGS (1)
  1. INQOVI [Suspect]
     Active Substance: CEDAZURIDINE\DECITABINE

REACTIONS (1)
  - Adverse event [None]
